FAERS Safety Report 19870913 (Version 1)
Quarter: 2021Q3

REPORT INFORMATION
  Report Type: Spontaneous
  Country: US (occurrence: US)
  Receive Date: 20210922
  Receipt Date: 20210922
  Transmission Date: 20211014
  Serious: Yes (Other)
  Sender: FDA-Public Use
  Company Number: None

PATIENT
  Age: 50 Year
  Sex: Female
  Weight: 46.9 kg

DRUGS (3)
  1. ADALIMUMAB [Suspect]
     Active Substance: ADALIMUMAB
     Indication: CROHN^S DISEASE
     Dosage: ?          OTHER FREQUENCY:Q14 DAYS;?
     Route: 058
     Dates: start: 20210528, end: 20210722
  2. CHOLECALCIFEROL 2,000 UNITS [Concomitant]
     Dates: start: 20210315
  3. CYANOCOBALAMIN 1000 MCG SQ [Concomitant]
     Dates: start: 20210629

REACTIONS (2)
  - Rash pustular [None]
  - Dermatitis [None]

NARRATIVE: CASE EVENT DATE: 20210725
